FAERS Safety Report 6551214-6 (Version None)
Quarter: 2010Q1

REPORT INFORMATION
  Report Type: 
  Country: None (occurrence: None)
  Receive Date: 20100121
  Receipt Date: 20100106
  Transmission Date: 20100710
  Serious: Yes (Other)
  Sender: FDA-Public Use
  Company Number: 2009003781

PATIENT
  Sex: Female

DRUGS (1)
  1. TARCEVA [Suspect]
     Indication: LUNG NEOPLASM MALIGNANT
     Dosage: (100 MG), ORAL
     Route: 048

REACTIONS (3)
  - EYE DISORDER [None]
  - NERVOUS SYSTEM DISORDER [None]
  - SENSORY LOSS [None]
